FAERS Safety Report 6480945-1 (Version None)
Quarter: 2009Q4

REPORT INFORMATION
  Report Type: 
  Country: None (occurrence: None)
  Receive Date: 20091208
  Receipt Date: 20091201
  Transmission Date: 20100525
  Serious: Yes (Other)
  Sender: FDA-Public Use
  Company Number: PHHY2009BE53209

PATIENT
  Age: 83 Year
  Sex: Female

DRUGS (2)
  1. RASILEZ [Suspect]
     Indication: HYPERTENSION
     Dosage: 150 MG
     Route: 048
  2. DILTIAZEM HCL [Concomitant]
     Route: 065

REACTIONS (2)
  - DYSPNOEA [None]
  - PULMONARY FIBROSIS [None]
